FAERS Safety Report 11964886 (Version 1)
Quarter: 2016Q1

REPORT INFORMATION
  Report Type: Spontaneous
  Country: US (occurrence: None)
  Receive Date: 20160122
  Receipt Date: 20160122
  Transmission Date: 20160526
  Serious: Yes (Disabling)
  Sender: FDA-Public Use
  Company Number: None

PATIENT
  Age: 75 Year
  Sex: Female
  Weight: 77.11 kg

DRUGS (12)
  1. VATTREX [Concomitant]
  2. VIT B [Concomitant]
     Active Substance: VITAMIN B
  3. SYNTHROID [Concomitant]
     Active Substance: LEVOTHYROXINE SODIUM
  4. HYDROCHLORIDE [Concomitant]
     Active Substance: UNSPECIFIED INGREDIENT
  5. FLAX SEED [Concomitant]
     Active Substance: FLAX SEED
  6. ALLORPURINOL [Concomitant]
  7. BIOTIN [Concomitant]
     Active Substance: BIOTIN
  8. LISINOPRIL. [Concomitant]
     Active Substance: LISINOPRIL
  9. CINNAMON. [Concomitant]
     Active Substance: CINNAMON
  10. VITAMIN D [Concomitant]
     Active Substance: CHOLECALCIFEROL
  11. VITAMIN C [Concomitant]
     Active Substance: ASCORBIC ACID
  12. NITROFURANTOIN MONO 100 MG WALMART [Suspect]
     Active Substance: NITROFURANTOIN MONOHYDRATE
     Indication: URINARY TRACT INFECTION
     Dosage: 2 PILLS 4 DAY FOR 3 DAYS, 2 TIMES A DAY, BY MOUTH AFTER FOOD.
     Dates: start: 20160105, end: 20160107

REACTIONS (1)
  - Headache [None]

NARRATIVE: CASE EVENT DATE: 20160105
